FAERS Safety Report 9871904 (Version 2)
Quarter: 2014Q1

REPORT INFORMATION
  Report Type: Spontaneous
  Country: US (occurrence: US)
  Receive Date: 20140205
  Receipt Date: 20140205
  Transmission Date: 20141002
  Serious: Yes (Hospitalization)
  Sender: FDA-Public Use
  Company Number: US-B.I. PHARMACEUTICALS,INC./RIDGEFIELD-2013-BI-42651BP

PATIENT
  Age: 56 Year
  Sex: Male
  Weight: 129.27 kg

DRUGS (7)
  1. PRADAXA [Suspect]
     Indication: ATRIAL FIBRILLATION
     Dosage: 300 MG
     Route: 048
     Dates: start: 20110103, end: 20130214
  2. DILTIAZEM [Concomitant]
     Dosage: 240 MG
     Route: 048
  3. GLIPIZIDE [Concomitant]
     Dosage: 40 MG
     Route: 048
  4. HCTZ/LISINOPRIL [Concomitant]
     Dosage: 20 MG
     Route: 048
  5. METFORMIN [Concomitant]
     Dosage: 2000 MG
     Route: 048
  6. PRAVASTATIN [Concomitant]
     Dosage: 40 MG
     Route: 048
  7. CARVEDILOL [Concomitant]
     Dosage: 12.5 MG

REACTIONS (2)
  - Gastrointestinal haemorrhage [Unknown]
  - Haemorrhagic anaemia [Unknown]
